FAERS Safety Report 9154614 (Version 2)
Quarter: 2013Q2

REPORT INFORMATION
  Report Type: Spontaneous
  Country: US (occurrence: US)
  Receive Date: 20130311
  Receipt Date: 20130416
  Transmission Date: 20140414
  Serious: Yes (Other)
  Sender: FDA-Public Use
  Company Number: PHEH2013US005552

PATIENT
  Age: 43 Year
  Sex: Female

DRUGS (4)
  1. GILENYA [Suspect]
     Dosage: UNK UKN, UNK
     Route: 048
     Dates: start: 201011, end: 201111
  2. REBIF [Suspect]
     Dosage: 44 UG, 3 IN 1 WEEK
     Route: 058
     Dates: end: 20121210
  3. CITALOPRAM [Concomitant]
     Indication: DEPRESSION
     Dosage: UNK UKN, UNK
  4. VIT D [Concomitant]

REACTIONS (4)
  - Metastases to lung [Recovering/Resolving]
  - Metastases to ovary [Recovering/Resolving]
  - Malignant melanoma [Not Recovered/Not Resolved]
  - Alopecia [Unknown]
